FAERS Safety Report 8287607-9 (Version None)
Quarter: 2012Q2

REPORT INFORMATION
  Report Type: 
  Country: None (occurrence: None)
  Receive Date: 20120416
  Receipt Date: 20120410
  Transmission Date: 20120825
  Serious: Yes (Hospitalization, Other)
  Sender: FDA-Public Use
  Company Number: PHFR2012GB001330

PATIENT
  Sex: Male

DRUGS (1)
  1. CLOZARIL [Suspect]
     Indication: SCHIZOPHRENIA
     Dosage: 800 MG, DAILY
     Route: 048
     Dates: start: 19920717

REACTIONS (6)
  - SPINAL CORD INJURY [None]
  - GAIT DISTURBANCE [None]
  - EPILEPSY [None]
  - MUSCULAR WEAKNESS [None]
  - FOOT FRACTURE [None]
  - FALL [None]
